FAERS Safety Report 8198726-X (Version None)
Quarter: 2012Q1

REPORT INFORMATION
  Report Type: 
  Country: None (occurrence: None)
  Receive Date: 20120309
  Receipt Date: 20120202
  Transmission Date: 20120608
  Serious: No
  Sender: FDA-Public Use
  Company Number: US-AMGEN-USASP2012007269

PATIENT
  Sex: Female

DRUGS (1)
  1. PROLIA [Suspect]
     Dosage: UNK

REACTIONS (1)
  - RASH [None]
